FAERS Safety Report 5565263-8 (Version None)
Quarter: 2007Q4

REPORT INFORMATION
  Report Type: 
  Country: None (occurrence: None)
  Receive Date: 20071218
  Receipt Date: 20071214
  Transmission Date: 20080405
  Serious: Yes (Other)
  Sender: FDA-Public Use
  Company Number: US-ASTRAZENECA-2007UW26546

PATIENT
  Age: 54 Year
  Sex: Female
  Weight: 77.1 kg

DRUGS (11)
  1. NEXIUM [Suspect]
     Indication: GASTROOESOPHAGEAL REFLUX DISEASE
     Route: 048
  2. NEXIUM [Suspect]
     Indication: EROSIVE OESOPHAGITIS
     Route: 048
  3. NEXIUM [Suspect]
     Route: 048
  4. NEXIUM [Suspect]
     Route: 048
  5. DARVOCET [Concomitant]
  6. PREDNISONE [Concomitant]
     Indication: RHEUMATOID ARTHRITIS
     Route: 048
  7. CELEBREX [Concomitant]
     Indication: RHEUMATOID ARTHRITIS
     Route: 048
  8. FOLIC ACID [Concomitant]
  9. METHOTREXATE [Concomitant]
  10. HYDROHEXOCHLOROFORM [Concomitant]
  11. HUMIRA [Concomitant]

REACTIONS (5)
  - DRUG INEFFECTIVE [None]
  - EROSIVE OESOPHAGITIS [None]
  - GASTROOESOPHAGEAL SPHINCTER INSUFFICIENCY [None]
  - OESOPHAGEAL STENOSIS [None]
  - OESOPHAGITIS [None]
